FAERS Safety Report 9742316 (Version 2)
Quarter: 2013Q4

REPORT INFORMATION
  Report Type: Spontaneous
  Country: FR (occurrence: FR)
  Receive Date: 20131210
  Receipt Date: 20131210
  Transmission Date: 20140711
  Serious: Yes (Hospitalization)
  Sender: FDA-Public Use
  Company Number: FR-SA-2013SA109579

PATIENT
  Age: 75 Year
  Sex: Female

DRUGS (10)
  1. BIPROFENID [Suspect]
     Indication: PAIN
     Route: 048
     Dates: start: 20131004, end: 20131005
  2. PROFENID [Suspect]
     Indication: PRODUCT USED FOR UNKNOWN INDICATION
     Route: 048
     Dates: start: 20121002, end: 20131003
  3. LOVENOX [Suspect]
     Indication: PRODUCT USED FOR UNKNOWN INDICATION
     Route: 042
     Dates: start: 20121003, end: 20131004
  4. PANTOPRAZOLE [Suspect]
     Indication: PAIN
     Route: 048
     Dates: start: 20131004, end: 20131004
  5. THIOCOLCHICOSIDE [Suspect]
     Indication: MUSCLE CONTRACTURE
     Route: 048
     Dates: start: 20131004, end: 20131005
  6. DAFALGAN [Suspect]
     Indication: PAIN
     Route: 048
     Dates: start: 20131004, end: 20131005
  7. ALPRAZOLAM [Suspect]
     Indication: ANXIETY
     Route: 048
     Dates: start: 20131004, end: 20131004
  8. PERFALGAN [Suspect]
     Indication: PRODUCT USED FOR UNKNOWN INDICATION
     Route: 042
     Dates: start: 20121002, end: 20131003
  9. INEXIUM [Suspect]
     Indication: PRODUCT USED FOR UNKNOWN INDICATION
     Route: 048
     Dates: start: 20121002, end: 20131004
  10. LAMALINE [Concomitant]

REACTIONS (7)
  - Hypotension [Recovered/Resolved]
  - Bradycardia [Recovered/Resolved]
  - Hyperhidrosis [Recovered/Resolved]
  - Abdominal rigidity [Recovered/Resolved]
  - Malaise [Recovered/Resolved]
  - Abdominal pain [Recovered/Resolved]
  - Diarrhoea [Recovered/Resolved]
